FAERS Safety Report 20351034 (Version 2)
Quarter: 2022Q1

REPORT INFORMATION
  Report Type: Report from Study
  Country: US (occurrence: US)
  Receive Date: 20220119
  Receipt Date: 20220131
  Transmission Date: 20220423
  Serious: Yes (Other)
  Sender: FDA-Public Use
  Company Number: US-NOVARTISPH-NVSC2022US006231

PATIENT
  Sex: Male
  Weight: 87.1 kg

DRUGS (6)
  1. COSENTYX [Suspect]
     Active Substance: SECUKINUMAB
     Indication: Product used for unknown indication
     Dosage: 150 MG, (QW X 5 WEEKS, THEN Q4W)
     Route: 058
     Dates: start: 20201216, end: 20210504
  2. COSENTYX [Suspect]
     Active Substance: SECUKINUMAB
     Dosage: 150 MG, (QW X 5 WEEKS, THEN Q4W)
     Route: 058
     Dates: start: 20210504, end: 20210708
  3. INSULIN GLARGINE [Concomitant]
     Active Substance: INSULIN GLARGINE
     Indication: Product used for unknown indication
     Dosage: UNK (STRENGTH: 100 UNITS/.ML, SUBQ PEN, INJECTED 18 UNITS UNDER THE SKIN EVERY NIGHT AT BED TIME)
     Route: 058
     Dates: start: 20201025, end: 20210929
  4. INSULIN LISPRO [Concomitant]
     Active Substance: INSULIN LISPRO
     Indication: Product used for unknown indication
     Dosage: UNK
     Route: 065
     Dates: start: 20201025
  5. TRAZODONE [Concomitant]
     Active Substance: TRAZODONE HYDROCHLORIDE
     Indication: Product used for unknown indication
     Dosage: 1 DOSAGE FORM, QD (AT BEDTIME)
     Route: 065
     Dates: start: 20201113, end: 20210901
  6. PANCRELIPASE [Concomitant]
     Active Substance: PANCRELIPASE
     Indication: Product used for unknown indication
     Dosage: 1 DOSAGE FORM, TID (5000-17000-24000 UNITS CPDR)
     Route: 048
     Dates: start: 20201025, end: 20210330

REACTIONS (4)
  - Diabetes mellitus [Unknown]
  - Psoriasis [Unknown]
  - Arthralgia [Unknown]
  - Skin plaque [Unknown]
